FAERS Safety Report 14406184 (Version 2)
Quarter: 2018Q1

REPORT INFORMATION
  Report Type: Spontaneous
  Country: US (occurrence: US)
  Receive Date: 20180118
  Receipt Date: 20180129
  Transmission Date: 20180509
  Serious: No
  Sender: FDA-Public Use
  Company Number: US-PFIZER INC-2018020861

PATIENT
  Age: 58 Year
  Sex: Male

DRUGS (11)
  1. GEMCITABINE HYDROCHLORIDE. [Suspect]
     Active Substance: GEMCITABINE HYDROCHLORIDE
     Dosage: UNK
     Dates: start: 20171216
  2. PROTONIX [Concomitant]
     Active Substance: PANTOPRAZOLE SODIUM
     Dosage: 40 MG, DAILY
     Route: 048
  3. XGEVA [Concomitant]
     Active Substance: DENOSUMAB
     Dosage: UNK Q28 DAYS
     Route: 058
  4. ZOFRAN [Concomitant]
     Active Substance: ONDANSETRON HYDROCHLORIDE
     Dosage: 8 MG, AS NEEDED (PRN/Q8H)
     Route: 048
  5. GEMCITABINE HYDROCHLORIDE. [Suspect]
     Active Substance: GEMCITABINE HYDROCHLORIDE
     Indication: LUNG ADENOCARCINOMA
     Dosage: UNK
     Dates: start: 20170330, end: 20170511
  6. BRIGATINIB [Concomitant]
     Active Substance: BRIGATINIB
     Dosage: 180 MG, UNK
     Dates: start: 20170527, end: 20171215
  7. TOPROL XL [Concomitant]
     Active Substance: METOPROLOL SUCCINATE
     Dosage: 50 MG, DAILY
     Route: 048
  8. BRIGATINIB [Concomitant]
     Active Substance: BRIGATINIB
     Indication: ANAPLASTIC LYMPHOMA KINASE GENE MUTATION
     Dosage: 90 MG, (FIRST 7 DAYS)
     Dates: start: 20170520, end: 20170526
  9. PERCOCET [Concomitant]
     Active Substance: ACETAMINOPHEN\OXYCODONE HYDROCHLORIDE
     Dosage: UNK, AS NEEDED [OXYCODONE HYDROCHLORIDE 5 MG]/ [PARACETAMOL 325 MG] (PRN/Q6H)
     Route: 048
  10. ZYKADIA [Concomitant]
     Active Substance: CERITINIB
     Dosage: 600 MG, DAILY
     Route: 048
  11. LOVENOX [Concomitant]
     Active Substance: ENOXAPARIN SODIUM
     Dosage: UNK, DAILY
     Route: 058

REACTIONS (1)
  - Neoplasm progression [Unknown]

NARRATIVE: CASE EVENT DATE: 2017
